FAERS Safety Report 9838418 (Version 4)
Quarter: 2014Q4

REPORT INFORMATION
  Report Type: Spontaneous
  Country: US (occurrence: US)
  Receive Date: 20140123
  Receipt Date: 20141205
  Transmission Date: 20150529
  Serious: Yes (Life-Threatening, Hospitalization, Disabling, Other)
  Sender: FDA-Public Use
  Company Number: US-BAYER-2014-007485

PATIENT
  Age: 24 Year
  Sex: Female
  Weight: 49.89 kg

DRUGS (8)
  1. CEFTRIAXONE. [Concomitant]
     Active Substance: CEFTRIAXONE
  2. FLAGYL [Concomitant]
     Active Substance: METRONIDAZOLE\METRONIDAZOLE HYDROCHLORIDE
  3. MOTRIN [Concomitant]
     Active Substance: IBUPROFEN
  4. IBUPROFEN. [Concomitant]
     Active Substance: IBUPROFEN
  5. HYDROCODONE BIT/APAP [Concomitant]
     Active Substance: ACETAMINOPHEN\HYDROCODONE BITARTRATE
  6. MORPHINE [Concomitant]
     Active Substance: MORPHINE
  7. MIRENA [Suspect]
     Active Substance: LEVONORGESTREL
     Indication: CONTRACEPTION
     Dosage: 20 MCG/24HR, CONT
     Route: 015
     Dates: start: 20100222, end: 20140303
  8. DOXYCYCLINE. [Concomitant]
     Active Substance: DOXYCYCLINE

REACTIONS (21)
  - Ectopic pregnancy [None]
  - Vaginal haemorrhage [None]
  - Ovarian cyst [None]
  - General physical health deterioration [None]
  - Device issue [None]
  - Pelvic pain [None]
  - Abdominal pain [None]
  - Device dislocation [None]
  - Anhedonia [None]
  - Ruptured ectopic pregnancy [Recovered/Resolved]
  - Vaginal discharge [None]
  - Anxiety [None]
  - Uterine perforation [None]
  - Balance disorder [None]
  - Ovarian cyst ruptured [Recovering/Resolving]
  - Shock [None]
  - Injury [None]
  - Dyspareunia [None]
  - Adnexa uteri pain [None]
  - Depression [None]
  - Drug ineffective [None]

NARRATIVE: CASE EVENT DATE: 2010
